FAERS Safety Report 17361671 (Version 3)
Quarter: 2021Q2

REPORT INFORMATION
  Report Type: Spontaneous
  Country: GR (occurrence: GR)
  Receive Date: 20200203
  Receipt Date: 20210606
  Transmission Date: 20210716
  Serious: Yes (Death)
  Sender: FDA-Public Use
  Company Number: GR-JNJFOC-20200149001

PATIENT
  Age: 86 Year
  Sex: Male

DRUGS (1)
  1. ZYTIGA [Suspect]
     Active Substance: ABIRATERONE ACETATE
     Indication: PROSTATE CANCER
     Dosage: 2CAPS/DAY
     Route: 048
     Dates: start: 20181116, end: 20181216

REACTIONS (2)
  - Cardio-respiratory arrest [Fatal]
  - Pyrexia [Unknown]

NARRATIVE: CASE EVENT DATE: 20190629
